FAERS Safety Report 17677715 (Version 1)
Quarter: 2020Q2

REPORT INFORMATION
  Report Type: Spontaneous
  Country: US (occurrence: US)
  Receive Date: 20200416
  Receipt Date: 20200416
  Transmission Date: 20200714
  Serious: No
  Sender: FDA-Public Use
  Company Number: US-BAUSCH-BL-2020-006240

PATIENT
  Sex: Male

DRUGS (2)
  1. DUOBRII [Suspect]
     Active Substance: HALOBETASOL PROPIONATE\TAZAROTENE
     Route: 061
     Dates: start: 2020, end: 202002
  2. DUOBRII [Suspect]
     Active Substance: HALOBETASOL PROPIONATE\TAZAROTENE
     Indication: PSORIASIS
     Route: 061

REACTIONS (3)
  - Inappropriate schedule of product administration [Unknown]
  - Rash [Recovering/Resolving]
  - Skin burning sensation [Recovering/Resolving]
